FAERS Safety Report 5811899-6 (Version None)
Quarter: 2008Q3

REPORT INFORMATION
  Report Type: 
  Country: None (occurrence: None)
  Receive Date: 20080716
  Receipt Date: 20080703
  Transmission Date: 20090109
  Serious: Yes (Disabling)
  Sender: FDA-Public Use
  Company Number: PT-ELI_LILLY_AND_COMPANY-PT200807001269

PATIENT
  Sex: Female

DRUGS (6)
  1. CYMBALTA [Suspect]
     Indication: DIABETIC NEUROPATHY
     Dosage: 60 MG, UNKNOWN
     Route: 048
     Dates: start: 20080221, end: 20080228
  2. GABAPENTIN [Concomitant]
     Indication: DIABETIC NEUROPATHY
     Dosage: 900 MG, UNKNOWN
     Route: 048
     Dates: start: 20071207
  3. ACETAMINOPHEN [Concomitant]
     Indication: DIABETIC NEUROPATHY
     Dosage: 3 G, OTHER
     Route: 065
  4. ACARBOSE [Concomitant]
     Indication: DIABETES MELLITUS
     Dosage: 150 MG, UNKNOWN
     Route: 048
  5. AMITRIPTYLINE HCL [Concomitant]
     Indication: DIABETIC NEUROPATHY
     Dosage: 25 MG, UNKNOWN
     Route: 048
     Dates: start: 20071207
  6. EZETIMIBE W/SIMVASTATIN [Concomitant]
     Indication: DYSLIPIDAEMIA
     Dosage: 20 MG, UNKNOWN
     Route: 048

REACTIONS (6)
  - ABDOMINAL PAIN UPPER [None]
  - DYSURIA [None]
  - EXFOLIATIVE RASH [None]
  - GASTRITIS EROSIVE [None]
  - POLYURIA [None]
  - RASH PAPULAR [None]
